FAERS Safety Report 9894666 (Version 2)
Quarter: 2014Q1

REPORT INFORMATION
  Report Type: Spontaneous
  Country: US (occurrence: US)
  Receive Date: 20140213
  Receipt Date: 20140303
  Transmission Date: 20141002
  Serious: Yes (Death, Hospitalization, Other)
  Sender: FDA-Public Use
  Company Number: US-B.I. PHARMACEUTICALS,INC./RIDGEFIELD-2014-BI-06411BP

PATIENT
  Age: 87 Year
  Sex: Female

DRUGS (8)
  1. COMBIVENT [Suspect]
     Indication: DYSPNOEA
     Dosage: STRENGTH: 20 MCG / 100 MCG; DAILY DOSE: 80 MCG/400 MCG
     Route: 055
     Dates: start: 2006
  2. COMBIVENT [Suspect]
     Indication: LUNG DISORDER
  3. DIGOXIN [Concomitant]
     Route: 065
  4. AMLODIPINE [Concomitant]
     Route: 065
  5. LISINOPRIL [Concomitant]
     Route: 065
  6. COUMADIN [Concomitant]
     Indication: ATRIAL FIBRILLATION
     Route: 065
  7. LIPITOR [Concomitant]
     Route: 065
  8. BYSTOLIC [Concomitant]
     Route: 065

REACTIONS (8)
  - Death [Fatal]
  - Fall [Unknown]
  - Pain [Unknown]
  - Contusion [Unknown]
  - Depressed level of consciousness [Unknown]
  - Dysstasia [Unknown]
  - Hypotension [Unknown]
  - Confusional state [Unknown]
